FAERS Safety Report 10210205 (Version 1)
Quarter: 2014Q2

REPORT INFORMATION
  Report Type: Spontaneous
  Country: US (occurrence: None)
  Receive Date: 20140528
  Receipt Date: 20140528
  Transmission Date: 20141212
  Serious: Yes (Hospitalization)
  Sender: FDA-Public Use
  Company Number: IPC201405-000245

PATIENT
  Age: 62 Year
  Sex: Female

DRUGS (5)
  1. METOPROLOL TARTRATE (METOPROLOL TARTRATE) (METOPROLOL TARTRATE) [Suspect]
  2. RIFAMPIN (RIFAMPIN) (RIFAMPIN) [Suspect]
  3. ATORVASTATIN (ATORVASTATIN) (ATORVASTATIN) [Suspect]
  4. CALCIUM (CALCIUM) (CALCIUM) [Suspect]
  5. VITAMIN D (VITAMIN D) (VITAMIN D) [Concomitant]

REACTIONS (4)
  - Angioedema [None]
  - Pruritus [None]
  - Rash generalised [None]
  - Drug ineffective [None]
